FAERS Safety Report 8607683 (Version 2)
Quarter: 2013Q1

REPORT INFORMATION
  Report Type: Spontaneous
  Country: US (occurrence: US)
  Receive Date: 20120611
  Receipt Date: 20130125
  Transmission Date: 20140127
  Serious: Yes (Hospitalization, Other)
  Sender: FDA-Public Use
  Company Number: US-BAYER-2012-056728

PATIENT
  Age: 38 Year
  Sex: Female
  Weight: 109 kg

DRUGS (8)
  1. YASMIN [Suspect]
     Indication: HORMONE LEVEL ABNORMAL
     Dosage: UNK
     Dates: start: 201001, end: 201105
  2. OCELLA [Suspect]
     Indication: HORMONE LEVEL ABNORMAL
     Dosage: UNK
     Dates: start: 201001, end: 201105
  3. OCELLA [Suspect]
     Indication: HORMONE LEVEL ABNORMAL
     Dosage: UNK
  4. ALEVE [Concomitant]
     Indication: PAIN
  5. TYLENOL [Concomitant]
     Dosage: 500 MG, UNK
  6. DONNATAL [Concomitant]
     Dosage: TAB TABLET) Q 8H ( HOURS) PRN AS NEEDED
  7. HYOMAX-SL [Concomitant]
     Dosage: 0.125 MG, UNK
  8. HALFLYTELY [BISACODYL,ELECTROLYTES NOS,MACROGOL 3350] [Concomitant]

REACTIONS (13)
  - Gallbladder disorder [None]
  - Cholecystitis chronic [None]
  - Irritable bowel syndrome [None]
  - Off label use [None]
  - Pain [None]
  - Injury [None]
  - Depression [None]
  - Emotional distress [None]
  - Fear [None]
  - Nervousness [None]
  - Diarrhoea [None]
  - Fatigue [None]
  - Mental disorder [None]
